FAERS Safety Report 18156799 (Version 1)
Quarter: 2020Q3

REPORT INFORMATION
  Report Type: Spontaneous
  Country: JP (occurrence: JP)
  Receive Date: 20200817
  Receipt Date: 20200817
  Transmission Date: 20201103
  Serious: Yes (Hospitalization, Other)
  Sender: FDA-Public Use
  Company Number: JP-SUN PHARMACEUTICAL INDUSTRIES LTD-2019R1-219330

PATIENT
  Age: 73 Year
  Sex: Male

DRUGS (5)
  1. ALOGLIPTIN. [Suspect]
     Active Substance: ALOGLIPTIN
     Indication: DIABETES MELLITUS
     Dosage: 2 TABLET OF 6.25MG
     Route: 065
  2. AMLODIPINE [Suspect]
     Active Substance: AMLODIPINE BESYLATE
     Indication: PRODUCT USED FOR UNKNOWN INDICATION
     Dosage: 84 TABLET OF 5MG
     Route: 065
  3. GLIMEPIRIDE. [Suspect]
     Active Substance: GLIMEPIRIDE
     Indication: DIABETES MELLITUS
     Dosage: 78 TABLETS OF 3MG
     Route: 065
  4. CANDAGEN [Suspect]
     Active Substance: CANDESARTAN CILEXETIL
     Indication: PRODUCT USED FOR UNKNOWN INDICATION
     Dosage: 29 TABLETS OF 8MG
     Route: 065
  5. METFORMIN [Suspect]
     Active Substance: METFORMIN HYDROCHLORIDE
     Indication: DIABETES MELLITUS
     Dosage: 200 TABLET OF 200MG
     Route: 065

REACTIONS (12)
  - Blood creatinine increased [Recovered/Resolved]
  - Anion gap increased [Recovered/Resolved]
  - Base excess increased [Recovered/Resolved]
  - Blood glucose decreased [Unknown]
  - Body temperature decreased [Unknown]
  - Blood pressure decreased [Unknown]
  - Blood pH decreased [Recovered/Resolved]
  - Altered state of consciousness [Unknown]
  - Blood potassium decreased [Unknown]
  - Blood lactic acid increased [Recovered/Resolved]
  - Intentional overdose [Unknown]
  - Heart rate decreased [Unknown]
